FAERS Safety Report 9062067 (Version 2)
Quarter: 2013Q1

REPORT INFORMATION
  Report Type: Spontaneous
  Country: NO (occurrence: NO)
  Receive Date: 20130204
  Receipt Date: 20130208
  Transmission Date: 20140127
  Serious: Yes (Other)
  Sender: FDA-Public Use
  Company Number: PHHY2013NO009525

PATIENT
  Age: 81 Year
  Sex: Male

DRUGS (5)
  1. DIOVAN [Suspect]
     Route: 048
  2. PLAVIX [Suspect]
     Dosage: 75 MG, QD
     Route: 048
     Dates: start: 201201
  3. LIPITOR [Suspect]
     Indication: HYPERLIPIDAEMIA
     Route: 048
     Dates: start: 201201
  4. OMNIC [Concomitant]
     Dosage: UNK UKN, UNK
     Route: 048
  5. PLENDIL [Concomitant]
     Dosage: UNK UKN, UNK
     Route: 048

REACTIONS (3)
  - Cerebrovascular accident [Recovered/Resolved]
  - Conjunctival haemorrhage [Recovering/Resolving]
  - Fatigue [Not Recovered/Not Resolved]
